FAERS Safety Report 6335483-3 (Version None)
Quarter: 2009Q3

REPORT INFORMATION
  Report Type: 
  Country: None (occurrence: None)
  Receive Date: 20090831
  Receipt Date: 20090806
  Transmission Date: 20100115
  Serious: Yes (Life-Threatening)
  Sender: FDA-Public Use
  Company Number: SZ-ASTRAZENECA-2009SE09923

PATIENT
  Age: 79 Year
  Sex: Female

DRUGS (17)
  1. DIPRIVAN [Suspect]
     Indication: FEMUR FRACTURE
     Route: 042
     Dates: start: 20090729, end: 20090729
  2. MEPRONIZINE [Suspect]
     Indication: FEMUR FRACTURE
  3. FENTANYL [Concomitant]
     Indication: FEMUR FRACTURE
     Route: 042
     Dates: start: 20090729, end: 20090729
  4. MORPHINE [Concomitant]
     Indication: FEMUR FRACTURE
     Route: 042
     Dates: start: 20090729, end: 20090729
  5. SUFENTANIL CITRATE [Concomitant]
     Indication: FEMUR FRACTURE
     Route: 042
     Dates: start: 20090729, end: 20090729
  6. VALIUM [Concomitant]
     Route: 048
  7. DEROXAT [Concomitant]
     Route: 048
  8. TOLVON [Concomitant]
     Route: 048
  9. TORECAN [Concomitant]
     Route: 048
  10. TRAMAL [Concomitant]
     Route: 048
  11. INDERAL [Concomitant]
     Route: 048
  12. PRAVASTATIN [Concomitant]
     Route: 048
  13. BUSCAPAN [Concomitant]
     Route: 048
  14. EUTHYROX [Concomitant]
     Route: 048
  15. DIOVAN HCT [Concomitant]
  16. ASPIRIN [Concomitant]
  17. CONDROSULF [Concomitant]
     Route: 048

REACTIONS (3)
  - COMA [None]
  - RESPIRATORY ACIDOSIS [None]
  - RESPIRATORY FAILURE [None]
